FAERS Safety Report 6260086-9 (Version None)
Quarter: 2009Q3

REPORT INFORMATION
  Report Type: 
  Country: None (occurrence: None)
  Receive Date: 20090708
  Receipt Date: 20090630
  Transmission Date: 20100115
  Serious: Yes (Other)
  Sender: FDA-Public Use
  Company Number: GB-NOVOPROD-288942

PATIENT
  Age: 39 Year
  Sex: Male

DRUGS (1)
  1. NORDITROPIN [Suspect]
     Indication: HYPOPITUITARISM
     Dosage: UNK MG, QD (0.2-0.4)
     Route: 058
     Dates: start: 20040922, end: 20090520

REACTIONS (1)
  - GASTROINTESTINAL CARCINOMA [None]
